FAERS Safety Report 8182098-0 (Version None)
Quarter: 2012Q1

REPORT INFORMATION
  Report Type: 
  Country: None (occurrence: None)
  Receive Date: 20120302
  Receipt Date: 20120223
  Transmission Date: 20120608
  Serious: Yes (Hospitalization)
  Sender: FDA-Public Use
  Company Number: PHHY2012BR007493

PATIENT
  Sex: Female

DRUGS (8)
  1. DEPAKOTE [Concomitant]
     Indication: MENTAL DISORDER
     Dosage: 1 DF, Q12H
  2. JANUMET [Concomitant]
     Indication: DIABETES MELLITUS
     Dosage: 1 DF, AFTER DINNER
  3. DALMADORM [Concomitant]
     Indication: MENTAL DISORDER
     Dosage: 1 DF, AT NIGHT
  4. LITHIUM CARBONATE [Concomitant]
     Indication: BIPOLAR DISORDER
     Dosage: 2 TABLETS IN THE MORNING AND ONE TABLET AT NIGHT
  5. EXFORGE [Suspect]
     Indication: HYPERTENSION
     Dosage: 1 DF,DAILY
  6. OMEPRAZOLE [Concomitant]
     Dosage: ONE FASTED TABLET
  7. OLCADIL [Concomitant]
     Indication: MENTAL DISORDER
     Dosage: 1 DF, Q8H
  8. NEOZINE [Concomitant]
     Indication: MENTAL DISORDER
     Dosage: 2 TABLETS IN THE MORNING AND 2 TABLETS AT NIGHT

REACTIONS (2)
  - BIPOLAR DISORDER [None]
  - SCHIZOPHRENIA [None]
